FAERS Safety Report 16299670 (Version 2)
Quarter: 2020Q4

REPORT INFORMATION
  Report Type: Spontaneous
  Country: US (occurrence: US)
  Receive Date: 20190510
  Receipt Date: 20201028
  Transmission Date: 20210113
  Serious: Yes (Death, Other)
  Sender: FDA-Public Use
  Company Number: US-ASTRAZENECA-2019SE62731

PATIENT
  Sex: Male

DRUGS (30)
  1. PRILOSEC [Suspect]
     Active Substance: OMEPRAZOLE MAGNESIUM
     Indication: GASTROOESOPHAGEAL REFLUX DISEASE
     Route: 048
     Dates: start: 199607, end: 199607
  2. PRILOSEC [Suspect]
     Active Substance: OMEPRAZOLE MAGNESIUM
     Indication: GASTROOESOPHAGEAL REFLUX DISEASE
     Route: 048
     Dates: start: 199607, end: 20160909
  3. ELIQUIS [Concomitant]
     Active Substance: APIXABAN
     Indication: THROMBOSIS
     Dates: start: 2018
  4. ESZOPICLONE. [Concomitant]
     Active Substance: ESZOPICLONE
     Dates: start: 20170414
  5. OXYCODONE [Concomitant]
     Active Substance: OXYCODONE
     Dates: start: 20170531
  6. MECLIZINE [Concomitant]
     Active Substance: MECLIZINE HYDROCHLORIDE
     Dates: start: 20180501
  7. SEVELAMER [Concomitant]
     Active Substance: SEVELAMER
     Dates: start: 20190328
  8. PROAIR HFA [Concomitant]
     Active Substance: ALBUTEROL SULFATE
     Dates: start: 20190507
  9. ZALEPLON. [Concomitant]
     Active Substance: ZALEPLON
     Indication: INSOMNIA
     Dates: start: 2017
  10. TAMSULOSIN [Concomitant]
     Active Substance: TAMSULOSIN
     Dates: start: 20180713
  11. FLUOXETINE [Concomitant]
     Active Substance: FLUOXETINE HYDROCHLORIDE
     Dates: start: 20181029
  12. GLIMEPIRIDE. [Concomitant]
     Active Substance: GLIMEPIRIDE
     Dates: start: 20181106
  13. GLIMEPIRIDE. [Concomitant]
     Active Substance: GLIMEPIRIDE
     Indication: DIABETES MELLITUS
     Dates: start: 2018
  14. GUAIFENESIN. [Concomitant]
     Active Substance: GUAIFENESIN
     Dates: start: 20171026
  15. DOXYCYCLINE HYC [Concomitant]
     Active Substance: DOXYCYCLINE HYCLATE
     Dates: start: 20171026
  16. QUININE [Concomitant]
     Active Substance: QUININE
     Dates: start: 20180327
  17. ALLOPURINOL. [Concomitant]
     Active Substance: ALLOPURINOL
     Dates: start: 20180402
  18. PRILOSEC [Suspect]
     Active Substance: OMEPRAZOLE MAGNESIUM
     Indication: GASTROOESOPHAGEAL REFLUX DISEASE
     Dosage: GENERIC
     Route: 065
     Dates: start: 20160726, end: 20160909
  19. HYDROCODONE [Concomitant]
     Active Substance: HYDROCODONE
     Indication: PAIN
     Dates: start: 2017
  20. MIDODRINE [Concomitant]
     Active Substance: MIDODRINE
     Dates: start: 20180205
  21. GABAPENTIN. [Concomitant]
     Active Substance: GABAPENTIN
     Dates: start: 20180507
  22. LYRICA [Concomitant]
     Active Substance: PREGABALIN
     Dates: start: 20190212
  23. WARFARIN SOD [Concomitant]
     Active Substance: WARFARIN SODIUM
     Dates: start: 20190516
  24. OSELTAMIVIR [Concomitant]
     Active Substance: OSELTAMIVIR
     Dates: start: 20170327
  25. LEVOFLOXACIN. [Concomitant]
     Active Substance: LEVOFLOXACIN
     Dates: start: 20170406
  26. HYDROCODONE BITARTRATE AND ACETAMINOPHEN [Concomitant]
     Active Substance: ACETAMINOPHEN\HYDROCODONE BITARTRATE
     Dates: start: 20170524
  27. AMOXICILLIN. [Concomitant]
     Active Substance: AMOXICILLIN
     Dates: start: 20180205
  28. MOMETASONE [Concomitant]
     Active Substance: MOMETASONE
     Dates: start: 20190516
  29. CYCLOBENZAPRINE. [Concomitant]
     Active Substance: CYCLOBENZAPRINE
     Indication: MUSCLE RELAXANT THERAPY
     Dates: start: 2018
  30. PREDNISONE. [Concomitant]
     Active Substance: PREDNISONE
     Dates: start: 20171031

REACTIONS (3)
  - Gastrooesophageal reflux disease [Not Recovered/Not Resolved]
  - Chronic kidney disease [Not Recovered/Not Resolved]
  - Acute kidney injury [Unknown]
